FAERS Safety Report 7524895-8 (Version None)
Quarter: 2011Q2

REPORT INFORMATION
  Report Type: 
  Country: None (occurrence: None)
  Receive Date: 20110602
  Receipt Date: 20110602
  Transmission Date: 20111010
  Serious: Yes (Death)
  Sender: FDA-Public Use
  Company Number: None

PATIENT
  Age: 71 Year
  Sex: Female
  Weight: 60 kg

DRUGS (1)
  1. PRADAXA [Suspect]

REACTIONS (6)
  - COMA [None]
  - INTERNATIONAL NORMALISED RATIO INCREASED [None]
  - BRAIN HERNIATION [None]
  - HEAD INJURY [None]
  - FALL [None]
  - HAEMORRHAGE INTRACRANIAL [None]
